FAERS Safety Report 5087941-X (Version None)
Quarter: 2006Q3

REPORT INFORMATION
  Report Type: 
  Country: None (occurrence: None)
  Receive Date: 20060821
  Receipt Date: 20060815
  Transmission Date: 20061208
  Serious: Yes (Other)
  Sender: FDA-Public Use
  Company Number: 145459USA

PATIENT
  Age: 74 Year
  Sex: Female

DRUGS (12)
  1. COPAXONE [Suspect]
     Indication: MULTIPLE SCLEROSIS
     Dosage: 20 MILLIGRAM QD SUBCUTANEOUS
     Route: 058
     Dates: start: 20021112
  2. NEXIUM [Concomitant]
  3. POTASSIUM [Concomitant]
  4. HYDUREL [Concomitant]
  5. PLAQUENIL [Concomitant]
  6. GLUCOTROL [Concomitant]
  7. ATARAX [Concomitant]
  8. EFFEXOR [Concomitant]
  9. EMBILEX [Concomitant]
  10. AMBIEN [Concomitant]
  11. DARVOCET [Concomitant]
  12. TYLENOL III [Concomitant]

REACTIONS (5)
  - CONTUSION [None]
  - INJECTION SITE NECROSIS [None]
  - NEOPLASM [None]
  - SKIN EXFOLIATION [None]
  - SKIN INFECTION [None]
